FAERS Safety Report 15718659 (Version 2)
Quarter: 2018Q4

REPORT INFORMATION
  Report Type: Spontaneous
  Country: JP (occurrence: JP)
  Receive Date: 20181213
  Receipt Date: 20181218
  Transmission Date: 20190205
  Serious: Yes (Death, Other)
  Sender: FDA-Public Use
  Company Number: JP-GLAXOSMITHKLINE-JP2018JPN223025

PATIENT
  Age: 70 Year
  Sex: Female
  Weight: 41 kg

DRUGS (13)
  1. VITAMEDIN COMBINATION CAPSULES [Concomitant]
     Dosage: 1 DF, BID(AFTER BREAKFAST, AFTER DINNER)
  2. MEPOLIZUMAB [Suspect]
     Active Substance: MEPOLIZUMAB
     Indication: ASTHMA
     Dosage: 100 MG, UNK
     Route: 058
     Dates: start: 20181108, end: 20181108
  3. BELSOMRA [Concomitant]
     Active Substance: SUVOREXANT
     Dosage: 20 MG, QD(BEFORE BEDTIME)
  4. PREDNISOLONE TABLETS [Concomitant]
     Dosage: 20 MG, QD(AFTER BREAKFAST)
  5. FAMOTIDINE OD TABLETS [Concomitant]
     Dosage: 20 MG, BID(AFTER BREAKFAST, AFTER DINNER)
  6. LOXOPROFEN NA TABLETS [Concomitant]
     Dosage: 60 MG, TID(AFTER EACH MEAL)
  7. ROZEREM [Concomitant]
     Active Substance: RAMELTEON
     Dosage: 8 MG, QD(BEFORE BEDTIME)
  8. CARBOCISTEINE TABLETS [Concomitant]
     Active Substance: CARBOCYSTEINE
     Dosage: 500 MG, TID(AFTER EACH MEAL)
  9. LUNESTA TABLETS [Concomitant]
     Dosage: 1 MG, QD(BEFORE BEDTIME)
  10. REFLEX TABLETS [Concomitant]
     Dosage: 15 MG, QD(BEFORE BEDTIME)
  11. SINGULAIR OD TABLETS [Concomitant]
     Dosage: 10 MG, QD(BEFORE BEDTIME)
  12. THEODUR TABLETS [Concomitant]
     Dosage: 200 MG, BID(AFTER BREAKFAST, AFTER DINNER)
  13. IPD [Concomitant]
     Active Substance: SUPLATAST TOSILATE
     Dosage: 100 MG, TID(AFTER EACH MEAL)

REACTIONS (1)
  - Sudden death [Fatal]

NARRATIVE: CASE EVENT DATE: 20181117
